FAERS Safety Report 25760047 (Version 1)
Quarter: 2025Q3

REPORT INFORMATION
  Report Type: Spontaneous
  Country: US (occurrence: US)
  Receive Date: 20250904
  Receipt Date: 20250904
  Transmission Date: 20251021
  Serious: No
  Sender: ASTELLAS
  Company Number: US-ASTELLAS-2025-AER-047104

PATIENT
  Age: 72 Year
  Sex: Female

DRUGS (2)
  1. MYRBETRIQ [Suspect]
     Active Substance: MIRABEGRON
     Indication: Incontinence
     Route: 065
     Dates: start: 20250820
  2. OXYBUTYNIN [Concomitant]
     Active Substance: OXYBUTYNIN
     Indication: Incontinence
     Route: 065

REACTIONS (2)
  - Vulvovaginal pain [Unknown]
  - Urine odour abnormal [Unknown]
